FAERS Safety Report 26191084 (Version 1)
Quarter: 2025Q4

REPORT INFORMATION
  Report Type: Spontaneous
  Country: EU (occurrence: EU)
  Receive Date: 20251223
  Receipt Date: 20251223
  Transmission Date: 20260118
  Serious: Yes (Other)
  Sender: MYLAN
  Company Number: EU-MYLANLABS-2025M1107905

PATIENT
  Age: 81 Year
  Sex: Female

DRUGS (12)
  1. ALLOPURINOL [Suspect]
     Active Substance: ALLOPURINOL
     Indication: Product used for unknown indication
     Dosage: UNK
  2. ALLOPURINOL [Suspect]
     Active Substance: ALLOPURINOL
     Dosage: UNK
     Route: 065
  3. ALLOPURINOL [Suspect]
     Active Substance: ALLOPURINOL
     Dosage: UNK
     Route: 065
  4. ALLOPURINOL [Suspect]
     Active Substance: ALLOPURINOL
     Dosage: UNK
  5. IRBESARTAN [Suspect]
     Active Substance: IRBESARTAN
     Indication: Product used for unknown indication
     Dosage: UNK
  6. IRBESARTAN [Suspect]
     Active Substance: IRBESARTAN
     Dosage: UNK
     Route: 065
  7. IRBESARTAN [Suspect]
     Active Substance: IRBESARTAN
     Dosage: UNK
     Route: 065
  8. IRBESARTAN [Suspect]
     Active Substance: IRBESARTAN
     Dosage: UNK
  9. VALPROATE SODIUM [Concomitant]
     Active Substance: VALPROATE SODIUM
     Dosage: 1.5 DOSAGE FORM, QD
     Dates: start: 1995
  10. VALPROATE SODIUM [Concomitant]
     Active Substance: VALPROATE SODIUM
     Dosage: 1.5 DOSAGE FORM, QD
     Route: 065
     Dates: start: 1995
  11. VALPROATE SODIUM [Concomitant]
     Active Substance: VALPROATE SODIUM
     Dosage: 1.5 DOSAGE FORM, QD
     Route: 065
     Dates: start: 1995
  12. VALPROATE SODIUM [Concomitant]
     Active Substance: VALPROATE SODIUM
     Dosage: 1.5 DOSAGE FORM, QD
     Dates: start: 1995

REACTIONS (3)
  - Syncope [Unknown]
  - Blood pressure abnormal [Unknown]
  - Headache [Unknown]
